FAERS Safety Report 5004730-2 (Version None)
Quarter: 2006Q1

REPORT INFORMATION
  Report Type: 
  Country: None (occurrence: None)
  Receive Date: 20060321
  Receipt Date: 20060202
  Transmission Date: 20060701
  Serious: No
  Sender: FDA-Public Use
  Company Number: 2006US000316

PATIENT
  Age: 83 Year
  Sex: Female

DRUGS (10)
  1. VESICARE [Suspect]
     Indication: INCONTINENCE
     Dosage: 5 MG, UID, ORAL
     Route: 048
     Dates: start: 20060118
  2. SYNTHROID [Concomitant]
  3. ALDACTAZIDE [Concomitant]
  4. PRILOSEC [Concomitant]
  5. AMARYL [Concomitant]
  6. ASCORBIC ACID [Concomitant]
  7. VITAMIN E [Concomitant]
  8. NORVASC [Concomitant]
  9. ALTACE [Concomitant]
  10. PRAVACHOL [Concomitant]

REACTIONS (1)
  - SCIATICA [None]
